FAERS Safety Report 10920938 (Version 1)
Quarter: 2015Q1

REPORT INFORMATION
  Report Type: Spontaneous
  Country: US (occurrence: US)
  Receive Date: 20150317
  Receipt Date: 20150317
  Transmission Date: 20150721
  Serious: Yes (Other)
  Sender: FDA-Public Use
  Company Number: US-TEVA-542011USA

PATIENT
  Sex: Female

DRUGS (3)
  1. DULOXETINE [Suspect]
     Active Substance: DULOXETINE
     Indication: ANXIETY
     Route: 048
     Dates: start: 20150130, end: 20150208
  2. DULOXETINE [Suspect]
     Active Substance: DULOXETINE
     Indication: MAJOR DEPRESSION
     Route: 048
     Dates: start: 2014
  3. FISH OIL [Concomitant]
     Active Substance: FISH OIL

REACTIONS (12)
  - Drug withdrawal syndrome [Not Recovered/Not Resolved]
  - Anger [Not Recovered/Not Resolved]
  - Constipation [Not Recovered/Not Resolved]
  - Depression [Not Recovered/Not Resolved]
  - Wrong technique in drug usage process [Unknown]
  - Drug prescribing error [Unknown]
  - Paranoia [Not Recovered/Not Resolved]
  - Bruxism [Not Recovered/Not Resolved]
  - Agitation [Not Recovered/Not Resolved]
  - Suicidal ideation [Not Recovered/Not Resolved]
  - Nausea [Not Recovered/Not Resolved]
  - Nightmare [Not Recovered/Not Resolved]
